FAERS Safety Report 24998894 (Version 1)
Quarter: 2025Q1

REPORT INFORMATION
  Report Type: Spontaneous
  Country: US (occurrence: US)
  Receive Date: 20250222
  Receipt Date: 20250222
  Transmission Date: 20250409
  Serious: No
  Sender: SANOFI AVENTIS
  Company Number: US-SA-2025SA047002

PATIENT
  Age: 68 Year
  Sex: Female
  Weight: 84.09 kg

DRUGS (10)
  1. DUPIXENT [Suspect]
     Active Substance: DUPILUMAB
     Indication: Neurodermatitis
     Dosage: 300 MG, QOW
     Route: 058
     Dates: start: 20230629
  2. ATOMOXETINE [Concomitant]
     Active Substance: ATOMOXETINE
  3. ESZOPICLONE [Concomitant]
     Active Substance: ESZOPICLONE
  4. ALPRAZOLAM [Concomitant]
     Active Substance: ALPRAZOLAM
  5. ATORVASTATIN CALCIUM [Concomitant]
     Active Substance: ATORVASTATIN CALCIUM
  6. MELOXICAM [Concomitant]
     Active Substance: MELOXICAM
  7. TRINTELLIX [Concomitant]
     Active Substance: VORTIOXETINE HYDROBROMIDE
  8. DONEPEZIL [Concomitant]
     Active Substance: DONEPEZIL
  9. LOSARTAN POTASSIUM [Concomitant]
     Active Substance: LOSARTAN POTASSIUM
  10. ALBUTEROL SULFATE [Concomitant]
     Active Substance: ALBUTEROL SULFATE

REACTIONS (2)
  - Gastrointestinal disorder [Not Recovered/Not Resolved]
  - Incorrect dose administered [Unknown]
